FAERS Safety Report 21214956 (Version 1)
Quarter: 2022Q3

REPORT INFORMATION
  Report Type: Spontaneous
  Country: US (occurrence: None)
  Receive Date: 20220816
  Receipt Date: 20220816
  Transmission Date: 20221027
  Serious: No
  Sender: FDA-Public Use
  Company Number: US-ROCHE-3084517

PATIENT
  Age: 24 Year
  Sex: Male
  Weight: 43.130 kg

DRUGS (3)
  1. EVRYSDI [Suspect]
     Active Substance: RISDIPLAM
     Indication: Spinal muscular atrophy
     Dosage: YES
     Route: 048
  2. ATENOLOL [Concomitant]
     Active Substance: ATENOLOL
     Indication: Blood pressure measurement
     Route: 048
  3. CLARITIN [Concomitant]
     Active Substance: LORATADINE
     Indication: Hypersensitivity
     Route: 048

REACTIONS (2)
  - Product container issue [Unknown]
  - No adverse event [Unknown]

NARRATIVE: CASE EVENT DATE: 20220425
